FAERS Safety Report 18567414 (Version 1)
Quarter: 2020Q4

REPORT INFORMATION
  Report Type: Spontaneous
  Country: CN (occurrence: CN)
  Receive Date: 20201201
  Receipt Date: 20201201
  Transmission Date: 20210114
  Serious: Yes (Hospitalization, Disabling)
  Sender: FDA-Public Use
  Company Number: CN-BAXTER-2020BAX024141

PATIENT
  Age: 3 Year
  Sex: Female

DRUGS (7)
  1. AOLUONA (TOPOTECAN HYDROCHLORIDE) [Suspect]
     Active Substance: TOPOTECAN HYDROCHLORIDE
     Indication: NEUROBLASTOMA
  2. UROMITEXAN [Suspect]
     Active Substance: MESNA
     Indication: ADRENAL NEOPLASM
     Route: 041
     Dates: start: 20201007, end: 20201011
  3. UROMITEXAN [Suspect]
     Active Substance: MESNA
     Indication: NEUROBLASTOMA
  4. UROMITEXAN [Suspect]
     Active Substance: MESNA
     Indication: RETROPERITONEAL NEOPLASM
  5. ENDOXAN [Suspect]
     Active Substance: CYCLOPHOSPHAMIDE
     Indication: NEUROBLASTOMA
  6. AOLUONA (TOPOTECAN HYDROCHLORIDE) [Suspect]
     Active Substance: TOPOTECAN HYDROCHLORIDE
     Indication: ADRENAL NEOPLASM
     Dosage: FIRST HIGH MAINTENANCE THERAPY, DAY 1 TO 5
     Route: 041
     Dates: start: 20201007, end: 20201011
  7. ENDOXAN [Suspect]
     Active Substance: CYCLOPHOSPHAMIDE
     Indication: ADRENAL NEOPLASM
     Dosage: FIRST HIGH MAINTENANCE THERAPY, DAY 1 TO 5
     Route: 041
     Dates: start: 20201007, end: 20201011

REACTIONS (1)
  - Myelosuppression [Recovering/Resolving]

NARRATIVE: CASE EVENT DATE: 20201011
